FAERS Safety Report 15410401 (Version 5)
Quarter: 2018Q4

REPORT INFORMATION
  Report Type: Spontaneous
  Country: US (occurrence: US)
  Receive Date: 20180921
  Receipt Date: 20181105
  Transmission Date: 20190204
  Serious: No
  Sender: FDA-Public Use
  Company Number: US-JNJFOC-20180841056

PATIENT
  Age: 73 Year
  Sex: Female
  Weight: 55 kg

DRUGS (14)
  1. CYANOCOBALAMIN. [Concomitant]
     Active Substance: CYANOCOBALAMIN
  2. IMBRUVICA [Suspect]
     Active Substance: IBRUTINIB
     Indication: CHRONIC LYMPHOCYTIC LEUKAEMIA
     Route: 048
     Dates: start: 20180823
  3. HYDROCHLOROTHIAZIDE. [Concomitant]
     Active Substance: HYDROCHLOROTHIAZIDE
     Indication: HYPERTENSION
  4. LORAZEPAM. [Concomitant]
     Active Substance: LORAZEPAM
  5. CALCIUM [Concomitant]
     Active Substance: CALCIUM
  6. RAMIPRIL. [Concomitant]
     Active Substance: RAMIPRIL
     Indication: HYPERTENSION
  7. MULTIVITAMINS [Concomitant]
     Active Substance: VITAMINS
     Indication: SUPPLEMENTATION THERAPY
  8. SILYBUM MARIANUM [Concomitant]
     Active Substance: DIETARY SUPPLEMENT\HERBALS\MILK THISTLE
  9. PROVENTIL [Concomitant]
     Active Substance: ALBUTEROL
  10. TURMERIC [Concomitant]
     Active Substance: HERBALS\TURMERIC
  11. MAGNESIUM [Concomitant]
     Active Substance: MAGNESIUM
  12. BENADRYL [Concomitant]
     Active Substance: DIPHENHYDRAMINE HYDROCHLORIDE
     Indication: SLEEP DISORDER
  13. VITAMIN D [Concomitant]
     Active Substance: CHOLECALCIFEROL
  14. SELENIUM [Concomitant]
     Active Substance: SELENIUM

REACTIONS (7)
  - Gingival bleeding [Unknown]
  - Angina bullosa haemorrhagica [Not Recovered/Not Resolved]
  - Oral herpes [Recovered/Resolved]
  - Stomatitis [Recovered/Resolved]
  - Aphthous ulcer [Recovering/Resolving]
  - Contusion [Not Recovered/Not Resolved]
  - Petechiae [Not Recovered/Not Resolved]

NARRATIVE: CASE EVENT DATE: 20180824
